FAERS Safety Report 8165867-2 (Version None)
Quarter: 2012Q1

REPORT INFORMATION
  Report Type: 
  Country: None (occurrence: None)
  Receive Date: 20120227
  Receipt Date: 20111027
  Transmission Date: 20120608
  Serious: No
  Sender: FDA-Public Use
  Company Number: US-MYLANLABS-2011S1022256

PATIENT
  Age: 25 Year
  Sex: Female
  Weight: 65.77 kg

DRUGS (3)
  1. LOESTRIN 1.5/30 [Concomitant]
     Indication: CONTRACEPTION
     Route: 048
  2. AMNESTEEM [Suspect]
     Indication: ACNE
     Route: 048
     Dates: start: 20110801, end: 20111025
  3. AMNESTEEM [Suspect]
     Dates: start: 20110801, end: 20111001

REACTIONS (3)
  - BLOOD CHOLESTEROL INCREASED [None]
  - ACNE [None]
  - BLOOD TRIGLYCERIDES INCREASED [None]
